FAERS Safety Report 7524583-8 (Version None)
Quarter: 2011Q2

REPORT INFORMATION
  Report Type: 
  Country: None (occurrence: None)
  Receive Date: 20110606
  Receipt Date: 20110527
  Transmission Date: 20111010
  Serious: No
  Sender: FDA-Public Use
  Company Number: FR-JNJFOC-20110508123

PATIENT
  Sex: Male
  Weight: 50 kg

DRUGS (13)
  1. MIRTAZAPINE [Concomitant]
     Indication: DEPRESSION
     Route: 048
  2. EDEX [Concomitant]
     Indication: ERECTILE DYSFUNCTION
     Route: 050
  3. PRAZEPAM [Concomitant]
     Indication: ANXIETY
     Route: 048
  4. DURAGESIC-100 [Suspect]
     Indication: CANCER PAIN
  5. DURAGESIC-100 [Suspect]
  6. ANALGESICS [Concomitant]
     Route: 065
  7. DURAGESIC-100 [Suspect]
  8. AMITRIPTYLINE HCL [Concomitant]
     Indication: NEURALGIA
     Route: 065
  9. DURAGESIC-100 [Suspect]
     Dates: start: 20110512
  10. ALPRAZOLAM [Concomitant]
     Indication: ANXIETY
     Route: 048
  11. DURAGESIC-100 [Suspect]
  12. DURAGESIC-100 [Suspect]
     Dates: start: 20110512
  13. GABAPENTINE [Concomitant]
     Indication: NEURALGIA
     Route: 065

REACTIONS (2)
  - WITHDRAWAL SYNDROME [None]
  - INAPPROPRIATE SCHEDULE OF DRUG ADMINISTRATION [None]
